FAERS Safety Report 7628944-8 (Version None)
Quarter: 2011Q3

REPORT INFORMATION
  Report Type: 
  Country: None (occurrence: None)
  Receive Date: 20110722
  Receipt Date: 20110711
  Transmission Date: 20111222
  Serious: Yes (Hospitalization, Other)
  Sender: FDA-Public Use
  Company Number: US-BAYER-201032473NA

PATIENT
  Age: 34 Year
  Sex: Female
  Weight: 61.224 kg

DRUGS (6)
  1. MINOCYCLINE HCL [Concomitant]
     Dosage: UNK
     Dates: start: 20070403
  2. NITROFURANTOIN [Concomitant]
     Dosage: 100 MG, UNK
     Dates: start: 20070502
  3. YASMIN [Suspect]
     Indication: ORAL CONTRACEPTION
     Dosage: UNK UNK, UNK
     Route: 048
     Dates: start: 20040101, end: 20070101
  4. YAZ [Suspect]
     Indication: ORAL CONTRACEPTION
     Dosage: UNK UNK, UNK
     Route: 048
     Dates: start: 20040101, end: 20070101
  5. FLEXERIL [Concomitant]
  6. PROTONIX [Concomitant]

REACTIONS (5)
  - FEAR [None]
  - DYSPNOEA [None]
  - THROMBOSIS [None]
  - PULMONARY EMBOLISM [None]
  - POST THROMBOTIC SYNDROME [None]
